FAERS Safety Report 11247067 (Version 1)
Quarter: 2015Q3

REPORT INFORMATION
  Report Type: Spontaneous
  Country: US (occurrence: US)
  Receive Date: 20150708
  Receipt Date: 20150708
  Transmission Date: 20151125
  Serious: No
  Sender: FDA-Public Use
  Company Number: US-PFIZER INC-2015222342

PATIENT
  Age: 60 Year
  Sex: Female

DRUGS (4)
  1. ADVIL [Suspect]
     Active Substance: IBUPROFEN
     Dosage: UNK
  2. LEFLUNOMIDE. [Interacting]
     Active Substance: LEFLUNOMIDE
     Indication: ARTHRITIS
     Dosage: 10 MG, 1X/DAY
  3. CALCIUM D3 [Interacting]
     Active Substance: CALCIUM\CHOLECALCIFEROL
     Dosage: UNK
  4. FUSION PLUS [Interacting]
     Active Substance: IRON\VITAMIN B
     Dosage: UNK

REACTIONS (6)
  - Pruritus [Unknown]
  - Erythema [Unknown]
  - Sunburn [Not Recovered/Not Resolved]
  - Urticaria [Unknown]
  - Skin burning sensation [Unknown]
  - Drug interaction [Unknown]

NARRATIVE: CASE EVENT DATE: 2015
